FAERS Safety Report 13269603 (Version 2)
Quarter: 2017Q1

REPORT INFORMATION
  Report Type: Report from Study
  Country: DE (occurrence: DE)
  Receive Date: 20170224
  Receipt Date: 20170314
  Transmission Date: 20170428
  Serious: Yes (Other)
  Sender: FDA-Public Use
  Company Number: PHHY2016DE143535

PATIENT
  Sex: Male
  Weight: 81 kg

DRUGS (13)
  1. COSENTYX [Suspect]
     Active Substance: SECUKINUMAB
     Dosage: 300 MG PER APPLICATION
     Route: 065
     Dates: start: 20160921
  2. COSENTYX [Suspect]
     Active Substance: SECUKINUMAB
     Dosage: 300 MG PER APPLICATION
     Route: 065
     Dates: start: 20160928
  3. COSENTYX [Suspect]
     Active Substance: SECUKINUMAB
     Dosage: 300 MG PER APPLICATION
     Route: 065
     Dates: start: 20161109
  4. COSENTYX [Suspect]
     Active Substance: SECUKINUMAB
     Dosage: 300 MG PER APPLICATION
     Route: 065
     Dates: start: 20161005
  5. COSENTYX [Suspect]
     Active Substance: SECUKINUMAB
     Dosage: 300 MG PER APPLICATION
     Route: 065
     Dates: start: 20170104
  6. BETAMETHASONE W/CALCIPOTRIOL [Concomitant]
     Indication: PSORIASIS
     Route: 061
     Dates: start: 1997
  7. DIPROGENTA [Concomitant]
     Active Substance: BETAMETHASONE DIPROPIONATE\GENTAMICIN SULFATE
     Indication: PERICHONDRITIS
     Dosage: 1 DF, QD
     Route: 061
     Dates: start: 20161024, end: 20161027
  8. DERMATOP [Concomitant]
     Active Substance: PREDNICARBATE
     Indication: ROSACEA
     Route: 061
     Dates: start: 20161001, end: 20161012
  9. COSENTYX [Suspect]
     Active Substance: SECUKINUMAB
     Dosage: 300 MG PER APPLICATION
     Route: 065
     Dates: start: 20161207
  10. COSENTYX [Suspect]
     Active Substance: SECUKINUMAB
     Indication: PSORIASIS
     Dosage: 300 MG PER APPLICATION PREFILLED PEN
     Route: 065
     Dates: start: 20160914
  11. PREDNICARBATE. [Concomitant]
     Active Substance: PREDNICARBATE
     Indication: PSORIASIS
     Dosage: EVERY THREE DAYS
     Route: 061
     Dates: start: 20131001, end: 20161012
  12. COSENTYX [Suspect]
     Active Substance: SECUKINUMAB
     Dosage: 300 MG PER APPLICATION
     Route: 065
     Dates: start: 20161012
  13. AMOXICLAV [Concomitant]
     Active Substance: AMOXICILLIN\CLAVULANIC ACID
     Indication: PERICHONDRITIS
     Dosage: 2 DF, UNK
     Route: 048
     Dates: start: 20161024, end: 20161029

REACTIONS (7)
  - Oral candidiasis [Not Recovered/Not Resolved]
  - Perichondritis [Recovered/Resolved]
  - Staphylococcal infection [Recovered/Resolved]
  - Rosacea [Not Recovered/Not Resolved]
  - Nausea [Recovered/Resolved]
  - Conjunctivitis bacterial [Recovered/Resolved]
  - Blepharitis [Recovered/Resolved]

NARRATIVE: CASE EVENT DATE: 20160917
